FAERS Safety Report 9349355 (Version 2)
Quarter: 2013Q2

REPORT INFORMATION
  Report Type: Spontaneous
  Country: US (occurrence: US)
  Receive Date: 20130614
  Receipt Date: 20130621
  Transmission Date: 20140414
  Serious: Yes (Hospitalization, Other)
  Sender: FDA-Public Use
  Company Number: US-BAXTER-2013BAX021638

PATIENT
  Age: 64 Year
  Sex: Female

DRUGS (2)
  1. DIANEAL LOW CALCIUM [Suspect]
     Indication: PERITONEAL DIALYSIS
     Route: 033
     Dates: start: 201301
  2. DIANEAL LOW CALCIUM [Suspect]
     Indication: PERITONEAL DIALYSIS
     Route: 033
     Dates: start: 201301

REACTIONS (10)
  - Myocardial infarction [Recovering/Resolving]
  - Chest pain [Recovered/Resolved]
  - Anaemia [Recovered/Resolved]
  - Thrombosis [Recovered/Resolved]
  - Poor peripheral circulation [Recovered/Resolved]
  - Bile duct stone [Recovered/Resolved]
  - Gastrointestinal haemorrhage [Unknown]
  - Gastritis [Recovering/Resolving]
  - Hypotension [Recovered/Resolved]
  - Incorrect dose administered [Unknown]
